FAERS Safety Report 13922441 (Version 1)
Quarter: 2017Q3

REPORT INFORMATION
  Report Type: Spontaneous
  Country: US (occurrence: US)
  Receive Date: 20170830
  Receipt Date: 20170830
  Transmission Date: 20171127
  Serious: Yes (Death, Other)
  Sender: FDA-Public Use
  Company Number: US-JAZZ-2017-US-011118

PATIENT
  Age: 85 Year
  Sex: Female

DRUGS (6)
  1. SUFENTA [Suspect]
     Active Substance: SUFENTANIL CITRATE
     Indication: SPINAL PAIN
     Dosage: 2.92 ?G, UNK
     Route: 037
  2. MORPHINE [Suspect]
     Active Substance: MORPHINE
     Indication: SPINAL PAIN
     Dosage: 0.58 MG, UNK
     Route: 037
  3. NAMENDA [Concomitant]
     Active Substance: MEMANTINE HYDROCHLORIDE
     Indication: SPINAL PAIN
  4. CLONAZEPAM. [Concomitant]
     Active Substance: CLONAZEPAM
     Indication: PRODUCT USED FOR UNKNOWN INDICATION
  5. TYLENOL WITH CODEINE [Concomitant]
     Active Substance: ACETAMINOPHEN\CODEINE PHOSPHATE
     Indication: PRODUCT USED FOR UNKNOWN INDICATION
  6. PRIALT [Suspect]
     Active Substance: ZICONOTIDE ACETATE
     Indication: SPINAL PAIN
     Dosage: UNK ?G, QH
     Route: 037

REACTIONS (3)
  - Dementia Alzheimer^s type [Fatal]
  - Apnoea [Fatal]
  - Drug ineffective [Unknown]

NARRATIVE: CASE EVENT DATE: 2004
